FAERS Safety Report 5492161-0 (Version None)
Quarter: 2007Q4

REPORT INFORMATION
  Report Type: 
  Country: None (occurrence: None)
  Receive Date: 20071018
  Receipt Date: 20070912
  Transmission Date: 20080405
  Serious: Yes (Hospitalization)
  Sender: FDA-Public Use
  Company Number: TPA2006A01187

PATIENT
  Age: 58 Year
  Sex: Female
  Weight: 144.2439 kg

DRUGS (16)
  1. ACTOS [Suspect]
     Indication: TYPE 2 DIABETES MELLITUS
     Dosage: SEE IMAGE
     Route: 048
     Dates: end: 20060101
  2. ACTOS [Suspect]
     Indication: TYPE 2 DIABETES MELLITUS
     Dosage: SEE IMAGE
     Route: 048
     Dates: start: 20010101
  3. ACTOS [Suspect]
     Indication: TYPE 2 DIABETES MELLITUS
     Dosage: SEE IMAGE
     Route: 048
     Dates: start: 20020101
  4. ACTOS [Suspect]
     Indication: TYPE 2 DIABETES MELLITUS
     Dosage: SEE IMAGE
     Route: 048
     Dates: start: 20060101
  5. ACTOS [Suspect]
  6. GLYBURIDE [Suspect]
     Indication: DIABETES MELLITUS
     Dosage: 5 MG, 3 IN 1 D, PER ORAL
     Route: 048
     Dates: start: 20010101
  7. GLIPIZIDE [Suspect]
     Indication: TYPE 2 DIABETES MELLITUS
     Dosage: 5 MG, 3 IN 1 D, PER ORAL
     Route: 048
     Dates: start: 20040101
  8. LYRICA [Suspect]
     Indication: DIABETIC NEUROPATHY
     Dosage: PER ORAL
     Route: 048
     Dates: start: 20040101, end: 20040101
  9. BYETTA [Suspect]
     Indication: TYPE 2 DIABETES MELLITUS
     Dosage: 5 MCG, 2 IN 1 D, SUBCUTANEOUS
     Route: 058
     Dates: start: 20070701
  10. BYETTA [Suspect]
     Indication: WEIGHT DECREASED
     Dosage: 5 MCG, 2 IN 1 D, SUBCUTANEOUS
     Route: 058
     Dates: start: 20070701
  11. LEVAQUIN [Suspect]
     Indication: KIDNEY INFECTION
     Dosage: 750 MG, 1 IN 1 D, INTRAVENOUS
     Route: 042
     Dates: start: 20070101, end: 20070101
  12. IBUPROFEN [Concomitant]
  13. ATACAND (CANDESARTAN CILEXETIL) (16 MILLIGRAM) [Concomitant]
  14. LASIX (FUROSEMIDE) (20 MILLIGRAM) [Concomitant]
  15. DEMADEX [Concomitant]
  16. NITROSTAT [Concomitant]

REACTIONS (26)
  - ANGIOPATHY [None]
  - ARTHRALGIA [None]
  - ASTHENIA [None]
  - BLOOD URIC ACID DECREASED [None]
  - CARDIAC DISORDER [None]
  - CARDIAC FAILURE CONGESTIVE [None]
  - CELLULITIS [None]
  - DIABETES MELLITUS INADEQUATE CONTROL [None]
  - DIABETIC NEUROPATHY [None]
  - DRUG INEFFECTIVE [None]
  - HEADACHE [None]
  - HEPATIC FAILURE [None]
  - HERPES ZOSTER [None]
  - HYPERHIDROSIS [None]
  - HYPOGLYCAEMIA [None]
  - INFLUENZA LIKE ILLNESS [None]
  - KIDNEY INFECTION [None]
  - NAUSEA [None]
  - RASH [None]
  - RENAL FAILURE [None]
  - RENAL HAEMORRHAGE [None]
  - SWELLING [None]
  - TRANSIENT ISCHAEMIC ATTACK [None]
  - TREMOR [None]
  - WEIGHT DECREASED [None]
  - WEIGHT INCREASED [None]
